FAERS Safety Report 8851191 (Version 2)
Quarter: 2013Q1

REPORT INFORMATION
  Report Type: Spontaneous
  Country: US (occurrence: US)
  Receive Date: 20121019
  Receipt Date: 20130117
  Transmission Date: 20140127
  Serious: No
  Sender: FDA-Public Use
  Company Number: US-BRISTOL-MYERS SQUIBB COMPANY-16986622

PATIENT
  Age: 71 Year
  Sex: Male

DRUGS (1)
  1. YERVOY [Suspect]
     Dosage: NO OF DOSES:4
     Dates: start: 20120619, end: 20120821

REACTIONS (1)
  - Diarrhoea [Unknown]
